FAERS Safety Report 16298063 (Version 1)
Quarter: 2019Q2

REPORT INFORMATION
  Report Type: Report from Study
  Country: US (occurrence: US)
  Receive Date: 20190510
  Receipt Date: 20190510
  Transmission Date: 20190711
  Serious: Yes (Hospitalization)
  Sender: FDA-Public Use
  Company Number: US-GILEAD-2019-0395492

PATIENT
  Age: 13 Year
  Sex: Female

DRUGS (7)
  1. TRACLEER [Concomitant]
     Active Substance: BOSENTAN
     Dosage: 62 MG, BID
  2. AMBRISENTAN [Suspect]
     Active Substance: AMBRISENTAN
     Indication: PULMONARY ARTERIAL HYPERTENSION
     Dosage: 10 MG, QD
     Route: 065
     Dates: start: 20180708, end: 20190307
  3. DIGOXIN. [Concomitant]
     Active Substance: DIGOXIN
  4. REMODULIN [Concomitant]
     Active Substance: TREPROSTINIL
  5. SILDENAFIL. [Concomitant]
     Active Substance: SILDENAFIL
     Dosage: 30 MG, TID
     Dates: start: 20150911
  6. COUMADIN [Concomitant]
     Active Substance: WARFARIN SODIUM
  7. FUROSEMIDE. [Concomitant]
     Active Substance: FUROSEMIDE

REACTIONS (2)
  - Cardiac disorder [Recovered/Resolved]
  - Off label use [Recovered/Resolved]

NARRATIVE: CASE EVENT DATE: 20180708
